FAERS Safety Report 8067305-7 (Version None)
Quarter: 2012Q1

REPORT INFORMATION
  Report Type: 
  Country: None (occurrence: None)
  Receive Date: 20120124
  Receipt Date: 20120117
  Transmission Date: 20120608
  Serious: No
  Sender: FDA-Public Use
  Company Number: JP-GLAXOSMITHKLINE-B0679946A

PATIENT
  Sex: Female

DRUGS (2)
  1. XELODA [Concomitant]
     Route: 048
  2. TYKERB [Suspect]
     Route: 048

REACTIONS (1)
  - SKIN DISORDER [None]
